FAERS Safety Report 4493942-2 (Version None)
Quarter: 2004Q4

REPORT INFORMATION
  Report Type: 
  Country: None (occurrence: None)
  Receive Date: 20041102
  Receipt Date: 20041102
  Transmission Date: 20050328
  Serious: Yes (Hospitalization)
  Sender: FDA-Public Use
  Company Number: None

PATIENT
  Age: 50 Year
  Sex: Male
  Weight: 92 kg

DRUGS (2)
  1. ZOSYN [Suspect]
     Indication: SEPSIS
     Dosage: 2.25 GM Q6 HOUR IV
     Route: 042
     Dates: start: 20040713, end: 20040719
  2. VANCOMYCIN [Suspect]
     Dosage: 1500 MG
     Dates: start: 20040713, end: 20040717

REACTIONS (1)
  - CLOSTRIDIUM COLITIS [None]
